FAERS Safety Report 13762281 (Version 1)
Quarter: 2017Q3

REPORT INFORMATION
  Report Type: Spontaneous
  Country: US (occurrence: US)
  Receive Date: 20170717
  Receipt Date: 20170717
  Transmission Date: 20171127
  Serious: No
  Sender: FDA-Public Use
  Company Number: None

PATIENT
  Age: 63 Year
  Sex: Male
  Weight: 102.6 kg

DRUGS (4)
  1. ATENOLOL. [Concomitant]
     Active Substance: ATENOLOL
  2. LISINOPRIL. [Suspect]
     Active Substance: LISINOPRIL
     Indication: BLOOD PRESSURE MEASUREMENT
     Dosage: ?          OTHER STRENGTH:MG;QUANTITY:100 TABLET(S);?
     Route: 048
     Dates: start: 20170629, end: 20170630
  3. VITAMIN D [Concomitant]
     Active Substance: CHOLECALCIFEROL
  4. PRILOSEC [Concomitant]
     Active Substance: OMEPRAZOLE MAGNESIUM

REACTIONS (8)
  - Dyspnoea [None]
  - Anxiety [None]
  - Somnolence [None]
  - Dizziness [None]
  - Chest pain [None]
  - Night sweats [None]
  - Cough [None]
  - Hypertension [None]

NARRATIVE: CASE EVENT DATE: 20170629
